FAERS Safety Report 20827010 (Version 1)
Quarter: 2022Q2

REPORT INFORMATION
  Report Type: Spontaneous
  Country: US (occurrence: None)
  Receive Date: 20220513
  Receipt Date: 20220513
  Transmission Date: 20220721
  Serious: Yes (Hospitalization)
  Sender: FDA-Public Use
  Company Number: None

PATIENT
  Sex: Male
  Weight: 155.6 kg

DRUGS (8)
  1. CYCLOPHOSPHAMIDE [Suspect]
     Active Substance: CYCLOPHOSPHAMIDE
     Dates: end: 20220401
  2. CYTARABINE [Suspect]
     Active Substance: CYTARABINE
     Dates: end: 20220411
  3. DEXAMETHASONE [Suspect]
     Active Substance: DEXAMETHASONE
     Dates: end: 20220301
  4. DOXORUBICIN HYDROCHLORIDE [Suspect]
     Active Substance: DOXORUBICIN HYDROCHLORIDE
     Dates: end: 20220224
  5. METHOTREXATE [Suspect]
     Active Substance: METHOTREXATE
     Dates: end: 20220209
  6. ONCASPAR [Suspect]
     Active Substance: PEGASPARGASE
     Dates: end: 20220415
  7. THIOGUANINE ANHYDROUS [Suspect]
     Active Substance: THIOGUANINE ANHYDROUS
     Dates: end: 20220414
  8. VINCRISTINE SULFATE [Suspect]
     Active Substance: VINCRISTINE SULFATE
     Dates: end: 20220423

REACTIONS (7)
  - Febrile neutropenia [None]
  - COVID-19 [None]
  - Hypotension [None]
  - Blood glucose decreased [None]
  - Septic shock [None]
  - Acute kidney injury [None]
  - Haemodynamic instability [None]

NARRATIVE: CASE EVENT DATE: 20220418
